FAERS Safety Report 9270216 (Version 3)
Quarter: 2013Q2

REPORT INFORMATION
  Report Type: Spontaneous
  Country: SK (occurrence: SK)
  Receive Date: 20130503
  Receipt Date: 20130516
  Transmission Date: 20140414
  Serious: No
  Sender: FDA-Public Use
  Company Number: SK-GLAXOSMITHKLINE-B0888319A

PATIENT
  Age: 36 Year
  Sex: Female

DRUGS (2)
  1. TROBALT [Suspect]
     Indication: EPILEPSY
     Dosage: 100MG THREE TIMES PER DAY
     Route: 065
     Dates: start: 20120601
  2. OXCARBAZEPINE [Concomitant]

REACTIONS (6)
  - Disturbance in attention [Recovered/Resolved]
  - Diplopia [Recovering/Resolving]
  - Ataxia [Recovering/Resolving]
  - Feeling abnormal [Recovering/Resolving]
  - Dysarthria [Recovering/Resolving]
  - Fatigue [Recovered/Resolved]
